FAERS Safety Report 9803303 (Version 1)
Quarter: 2014Q1

REPORT INFORMATION
  Report Type: Spontaneous
  Country: US (occurrence: None)
  Receive Date: 20140107
  Receipt Date: 20140107
  Transmission Date: 20141002
  Serious: Yes (Hospitalization)
  Sender: FDA-Public Use
  Company Number: None

PATIENT
  Age: 60 Year
  Sex: Female
  Weight: 92 kg

DRUGS (1)
  1. VOLUMEN [Suspect]
     Indication: DIAGNOSTIC PROCEDURE
     Dosage: 3 CONTAINERS  ONCE  ORAL
     Route: 048
     Dates: start: 20130807

REACTIONS (1)
  - Pulmonary oedema [None]
